FAERS Safety Report 8172470-7 (Version None)
Quarter: 2012Q1

REPORT INFORMATION
  Report Type: 
  Country: None (occurrence: None)
  Receive Date: 20120227
  Receipt Date: 20120227
  Transmission Date: 20120608
  Serious: Yes (Hospitalization)
  Sender: FDA-Public Use
  Company Number: None

PATIENT
  Age: 48 Year
  Sex: Male
  Weight: 131.9 kg

DRUGS (2)
  1. TRAZODONE HCL [Suspect]
     Indication: INSOMNIA
     Dosage: 200 MG AT BEDTIME PO
     Route: 048
     Dates: start: 20110906, end: 20120213
  2. ARIPIPRAZOLE [Suspect]
     Indication: BIPOLAR DISORDER
     Dosage: 2.5 MG EVERY DAY PO
     Route: 048
     Dates: start: 20110405, end: 20120213

REACTIONS (1)
  - ELECTROCARDIOGRAM QT PROLONGED [None]
